FAERS Safety Report 7274871-8 (Version None)
Quarter: 2011Q1

REPORT INFORMATION
  Report Type: 
  Country: None (occurrence: None)
  Receive Date: 20110204
  Receipt Date: 20110120
  Transmission Date: 20110831
  Serious: Yes (Other)
  Sender: FDA-Public Use
  Company Number: US-CELGENEUS-163-20785-11012303

PATIENT
  Sex: Female
  Weight: 76.227 kg

DRUGS (3)
  1. DEXAMETHASONE [Suspect]
     Indication: MULTIPLE MYELOMA
     Route: 065
     Dates: end: 20050101
  2. THALOMID [Suspect]
     Indication: MULTIPLE MYELOMA
     Route: 048
     Dates: end: 20050101
  3. THALOMID [Suspect]
     Route: 048
     Dates: end: 20070801

REACTIONS (8)
  - ABDOMINAL PAIN [None]
  - DISEASE PROGRESSION [None]
  - HYPERCALCAEMIA [None]
  - MULTIPLE MYELOMA [None]
  - PATHOLOGICAL FRACTURE [None]
  - BACK PAIN [None]
  - NEUROPATHY PERIPHERAL [None]
  - NEOPLASM MALIGNANT [None]
